FAERS Safety Report 4733464-4 (Version None)
Quarter: 2005Q3

REPORT INFORMATION
  Report Type: 
  Country: None (occurrence: None)
  Receive Date: 20050801
  Receipt Date: 20050801
  Transmission Date: 20060218
  Serious: Yes (Hospitalization)
  Sender: FDA-Public Use
  Company Number: None

PATIENT
  Age: 67 Year
  Sex: Male

DRUGS (11)
  1. FUROSEMIDE [Suspect]
     Indication: HYPERTENSION
     Dosage: 20 MG QD
     Dates: start: 19950801
  2. FOSINOPRIL SODIUM [Suspect]
     Indication: HYPERTENSION
  3. METFORMIN [Concomitant]
  4. OSCAL [Concomitant]
  5. CIMETIDINE [Concomitant]
  6. SERTRALINE HCL [Concomitant]
  7. ZOCOR [Concomitant]
  8. METOCLOPRAMIDE [Concomitant]
  9. ALLOPURINOL [Concomitant]
  10. FENOFIBRATE [Concomitant]
  11. METHECARBAMOL [Concomitant]

REACTIONS (1)
  - RENAL FAILURE ACUTE [None]
